FAERS Safety Report 13868761 (Version 1)
Quarter: 2017Q3

REPORT INFORMATION
  Report Type: Spontaneous
  Country: US (occurrence: US)
  Receive Date: 20170815
  Receipt Date: 20170815
  Transmission Date: 20171127
  Serious: No
  Sender: FDA-Public Use
  Company Number: PHEH2017US025774

PATIENT
  Sex: Female

DRUGS (1)
  1. PROMACTA [Suspect]
     Active Substance: ELTROMBOPAG OLAMINE
     Indication: PULMONARY ARTERIAL HYPERTENSION
     Dosage: 50 MG, QD
     Route: 048
     Dates: start: 201707

REACTIONS (2)
  - Alopecia [Unknown]
  - Trichorrhexis [Unknown]
